FAERS Safety Report 8969163 (Version 1)
Quarter: 2012Q4

REPORT INFORMATION
  Report Type: 
  Country: BR (occurrence: BR)
  Receive Date: 20121217
  Receipt Date: 20121217
  Transmission Date: 20130627
  Serious: Yes (Death)
  Sender: FDA-Public Use
  Company Number: BR-009507513-1212BRA005233

PATIENT
  Sex: Female

DRUGS (1)
  1. ZETSIM [Suspect]
     Dosage: 20/40 mg, QD
     Route: 048

REACTIONS (2)
  - Death [Fatal]
  - Overdose [Unknown]
